FAERS Safety Report 5740772-7 (Version None)
Quarter: 2008Q2

REPORT INFORMATION
  Report Type: 
  Country: None (occurrence: None)
  Receive Date: 20080516
  Receipt Date: 20080505
  Transmission Date: 20081010
  Serious: Yes (Other)
  Sender: FDA-Public Use
  Company Number: US-ELI_LILLY_AND_COMPANY-US200805000597

PATIENT
  Sex: Female

DRUGS (3)
  1. EVISTA [Suspect]
     Indication: BONE DISORDER
     Dosage: 60 MG, EACH MORNING
     Dates: end: 20080301
  2. ARIMIDEX [Concomitant]
  3. CALCIUM [Concomitant]

REACTIONS (4)
  - ABDOMINAL DISTENSION [None]
  - BREAST CANCER [None]
  - HEART RATE IRREGULAR [None]
  - JOINT SWELLING [None]
